FAERS Safety Report 17193945 (Version 4)
Quarter: 2020Q2

REPORT INFORMATION
  Report Type: Report from Study
  Country: JP (occurrence: JP)
  Receive Date: 20191223
  Receipt Date: 20200514
  Transmission Date: 20200713
  Serious: Yes (Death, Other)
  Sender: FDA-Public Use
  Company Number: JP-TAKEDA-2019TUS072901

PATIENT
  Age: 73 Year
  Sex: Male
  Weight: 59.4 kg

DRUGS (6)
  1. PONATINIB [Suspect]
     Active Substance: PONATINIB
     Indication: ACUTE LYMPHOCYTIC LEUKAEMIA
     Dosage: 30 MILLIGRAM, QD
     Route: 048
     Dates: start: 20171101, end: 20171114
  2. DASATINIB MONOHYDRATE [Concomitant]
     Active Substance: DASATINIB
     Dosage: 50 MILLIGRAM, QD
     Route: 065
     Dates: start: 20160411, end: 20160413
  3. DASATINIB MONOHYDRATE [Concomitant]
     Active Substance: DASATINIB
     Dosage: 50 MILLIGRAM, QD
     Route: 065
     Dates: start: 20160229, end: 20190319
  4. DASATINIB MONOHYDRATE [Concomitant]
     Active Substance: DASATINIB
     Dosage: 50 MILLIGRAM, QD
     Route: 065
     Dates: start: 20170224, end: 20171031
  5. ITRIZOLE [Concomitant]
     Active Substance: ITRACONAZOLE
     Indication: PROPHYLAXIS
     Dosage: UNK
     Route: 048
     Dates: start: 20171114, end: 20171114
  6. DASATINIB MONOHYDRATE [Concomitant]
     Active Substance: DASATINIB
     Indication: ACUTE LYMPHOCYTIC LEUKAEMIA
     Dosage: 100 MILLIGRAM, QD
     Route: 065
     Dates: start: 20160215, end: 20160222

REACTIONS (3)
  - Therapeutic product effect incomplete [Unknown]
  - Anaemia [Fatal]
  - Disseminated intravascular coagulation [Fatal]

NARRATIVE: CASE EVENT DATE: 20171107
